APPROVED DRUG PRODUCT: AMLODIPINE BESYLATE
Active Ingredient: AMLODIPINE BESYLATE
Strength: EQ 2.5MG BASE
Dosage Form/Route: TABLET;ORAL
Application: A207821 | Product #001 | TE Code: AB
Applicant: PURACAP LABORATORIES LLC DBA BLU PHARMACEUTICALS
Approved: Jul 11, 2016 | RLD: No | RS: No | Type: RX